FAERS Safety Report 5374311-X (Version None)
Quarter: 2007Q2

REPORT INFORMATION
  Report Type: 
  Country: None (occurrence: None)
  Receive Date: 20070629
  Receipt Date: 20070619
  Transmission Date: 20071010
  Serious: Yes (Hospitalization)
  Sender: FDA-Public Use
  Company Number: US-JNJFOC-20070601988

PATIENT
  Sex: Male
  Weight: 70 kg

DRUGS (5)
  1. INFLIXIMAB [Suspect]
     Route: 042
  2. INFLIXIMAB [Suspect]
     Route: 042
  3. INFLIXIMAB [Suspect]
     Indication: COLITIS ULCERATIVE
     Route: 042
  4. PREDNISONE TAB [Concomitant]
  5. 6MP [Concomitant]

REACTIONS (6)
  - ACUTE ABDOMEN [None]
  - COLITIS ULCERATIVE [None]
  - NO THERAPEUTIC RESPONSE [None]
  - PYREXIA [None]
  - SEPTIC SHOCK [None]
  - WHITE BLOOD CELL COUNT INCREASED [None]
